FAERS Safety Report 8570133 (Version 4)
Quarter: 2012Q4

REPORT INFORMATION
  Report Type: Report from Study
  Country: CA (occurrence: CA)
  Receive Date: 20120521
  Receipt Date: 20120928
  Transmission Date: 20130627
  Serious: Yes (Other)
  Sender: FDA-Public Use
  Company Number: CA-BRISTOL-MYERS SQUIBB COMPANY-16587123

PATIENT
  Age: 73 Year
  Sex: Female

DRUGS (15)
  1. CETUXIMAB [Suspect]
     Indication: NON-SMALL CELL LUNG CANCER
     Route: 042
     Dates: start: 20120327
  2. CISPLATIN [Suspect]
     Indication: NON-SMALL CELL LUNG CANCER
     Route: 042
     Dates: start: 20120327
  3. VINORELBINE [Suspect]
     Indication: NON-SMALL CELL LUNG CANCER
     Route: 042
     Dates: start: 20120327
  4. DETROL LA [Concomitant]
     Route: 048
     Dates: start: 2009
  5. AVAPRO [Concomitant]
     Route: 048
     Dates: start: 2009
  6. METFORMIN [Concomitant]
     Route: 048
     Dates: start: 2000
  7. JANUVIA [Concomitant]
     Route: 042
     Dates: start: 2010
  8. DIAMICRON [Concomitant]
     Route: 048
     Dates: start: 2010
  9. CRESTOR [Concomitant]
     Route: 048
     Dates: start: 2010
  10. ONDANSETRON [Concomitant]
     Dosage: 8mg bid*3days each cycle
     Route: 048
     Dates: start: 20120327
  11. DEXAMETHASONE [Concomitant]
     Dosage: 4mg bid*3 days each cycle
     Route: 048
     Dates: start: 20120327
  12. SYNTHROID [Concomitant]
     Dosage: alternating days
     Dates: start: 1999
  13. ACETYLSALICYLIC ACID [Concomitant]
     Route: 048
     Dates: start: 2000
  14. VITAMIN C [Concomitant]
     Route: 048
     Dates: start: 20120418
  15. VITAMIN D [Concomitant]
     Dates: start: 201101

REACTIONS (1)
  - Pulmonary embolism [Recovered/Resolved]
